FAERS Safety Report 21083481 (Version 1)
Quarter: 2022Q3

REPORT INFORMATION
  Report Type: Report from Study
  Country: US (occurrence: None)
  Receive Date: 20220714
  Receipt Date: 20220714
  Transmission Date: 20221027
  Serious: Yes (Other)
  Sender: FDA-Public Use
  Company Number: 2022A248965

PATIENT
  Sex: Female

DRUGS (1)
  1. TAGRISSO [Suspect]
     Active Substance: OSIMERTINIB
     Indication: Lung carcinoma cell type unspecified stage 0
     Route: 048

REACTIONS (16)
  - Central nervous system lesion [Unknown]
  - Swelling [Unknown]
  - Musculoskeletal stiffness [Unknown]
  - Dizziness [Unknown]
  - Muscle spasms [Unknown]
  - Depression [Unknown]
  - Cardiac disorder [Unknown]
  - Decreased appetite [Unknown]
  - Fatigue [Unknown]
  - Parosmia [Unknown]
  - Salivary hypersecretion [Unknown]
  - Vomiting [Unknown]
  - Illness [Unknown]
  - Pruritus [Unknown]
  - Diarrhoea [Unknown]
  - Product use issue [Unknown]
